FAERS Safety Report 25391712 (Version 1)
Quarter: 2025Q2

REPORT INFORMATION
  Report Type: Spontaneous
  Country: BR (occurrence: BR)
  Receive Date: 20250603
  Receipt Date: 20250603
  Transmission Date: 20250717
  Serious: Yes (Other)
  Sender: NOVARTIS
  Company Number: BR-002147023-NVSC2025BR086962

PATIENT
  Sex: Male

DRUGS (1)
  1. IMATINIB [Suspect]
     Active Substance: IMATINIB
     Indication: Product used for unknown indication
     Route: 065

REACTIONS (10)
  - Bone lesion [Unknown]
  - Acute myocardial infarction [Unknown]
  - Cytogenetic analysis abnormal [Unknown]
  - Therapeutic response decreased [Unknown]
  - Hypertension [Unknown]
  - Dyslipidaemia [Unknown]
  - Intermittent claudication [Unknown]
  - Arterial occlusive disease [Unknown]
  - Peripheral arterial occlusive disease [Unknown]
  - Loss of therapeutic response [Unknown]
